FAERS Safety Report 9099668 (Version 2)
Quarter: 2013Q1

REPORT INFORMATION
  Report Type: Spontaneous
  Country: JP (occurrence: JP)
  Receive Date: 20130214
  Receipt Date: 20130227
  Transmission Date: 20140127
  Serious: Yes (Hospitalization)
  Sender: FDA-Public Use
  Company Number: JP-009507513-1203USA01649

PATIENT
  Sex: Female

DRUGS (3)
  1. JANUVIA TABLETS 50MG [Suspect]
     Dosage: UNK
     Route: 048
     Dates: end: 201202
  2. BASEN [Concomitant]
  3. YOKU-KAN-SAN [Concomitant]
     Route: 048

REACTIONS (1)
  - Skin disorder [Recovered/Resolved]
